FAERS Safety Report 5951290-5 (Version None)
Quarter: 2008Q4

REPORT INFORMATION
  Report Type: 
  Country: None (occurrence: None)
  Receive Date: 20081113
  Receipt Date: 20081030
  Transmission Date: 20090506
  Serious: Yes (Hospitalization)
  Sender: FDA-Public Use
  Company Number: US-BAYER-200822866GPV

PATIENT
  Age: 65 Year
  Sex: Male

DRUGS (13)
  1. CIPROFLOXACIN [Suspect]
     Indication: CELLULITIS
     Route: 065
     Dates: start: 20060101, end: 20060101
  2. WARFARIN SODIUM [Concomitant]
     Indication: CEREBROVASCULAR ACCIDENT
     Dates: start: 20000101, end: 20060101
  3. FUROSEMIDE [Concomitant]
     Indication: ISCHAEMIC CARDIOMYOPATHY
     Route: 030
     Dates: start: 20061101, end: 20061101
  4. FUROSEMIDE [Concomitant]
     Dates: start: 20061101
  5. FUROSEMIDE [Concomitant]
  6. STEROID [Concomitant]
     Indication: RASH
     Dates: start: 20061101
  7. LISINOPRIL [Concomitant]
     Indication: DRUG USE FOR UNKNOWN INDICATION
     Route: 065
  8. METOPROLOL TARTRATE [Concomitant]
     Indication: DRUG USE FOR UNKNOWN INDICATION
  9. SIMVASTATIN [Concomitant]
     Indication: DRUG USE FOR UNKNOWN INDICATION
     Dates: end: 20060101
  10. NIACIN [Concomitant]
     Indication: DRUG USE FOR UNKNOWN INDICATION
     Route: 065
     Dates: end: 20060101
  11. FOLIC ACID [Concomitant]
     Indication: DRUG USE FOR UNKNOWN INDICATION
     Route: 065
  12. POTASSIUM CHLORIDE [Concomitant]
     Indication: DRUG USE FOR UNKNOWN INDICATION
     Route: 065
  13. MULTI-VITAMIN [Concomitant]
     Indication: DRUG USE FOR UNKNOWN INDICATION

REACTIONS (6)
  - ANURIA [None]
  - CHOLESTATIC LIVER INJURY [None]
  - JAUNDICE [None]
  - OLIGURIA [None]
  - RENAL FAILURE ACUTE [None]
  - RENAL TUBULAR NECROSIS [None]
